FAERS Safety Report 9278311 (Version 1)
Quarter: 2013Q2

REPORT INFORMATION
  Report Type: Spontaneous
  Country: US (occurrence: None)
  Receive Date: 20130506
  Receipt Date: 20130506
  Transmission Date: 20140414
  Serious: Yes (Other)
  Sender: FDA-Public Use
  Company Number: None

PATIENT
  Age: 29 Year
  Sex: Female
  Weight: 49.9 kg

DRUGS (1)
  1. MIRENA [Suspect]
     Indication: CONTRACEPTION
     Dates: start: 20120901, end: 20130401

REACTIONS (10)
  - Headache [None]
  - Dysstasia [None]
  - Impaired self-care [None]
  - Hypoaesthesia [None]
  - Feeling abnormal [None]
  - Amnesia [None]
  - Disturbance in attention [None]
  - Cognitive disorder [None]
  - Feeling abnormal [None]
  - Palpitations [None]
